FAERS Safety Report 20688550 (Version 1)
Quarter: 2022Q2

REPORT INFORMATION
  Report Type: Spontaneous
  Country: DE (occurrence: DE)
  Receive Date: 20220408
  Receipt Date: 20220408
  Transmission Date: 20220721
  Serious: Yes (Life-Threatening, Other)
  Sender: FDA-Public Use
  Company Number: DE-STADA-244996

PATIENT
  Age: 82 Year
  Sex: Female

DRUGS (7)
  1. CLOZAPINE [Suspect]
     Active Substance: CLOZAPINE
     Indication: Schizophrenia
     Dosage: 50 MILLIGRAM, ONCE A DAY (DOSE REDUCED)
     Route: 065
  2. CLOZAPINE [Suspect]
     Active Substance: CLOZAPINE
     Dosage: 200 MILLIGRAM, ONCE A DAY
     Route: 065
  3. CLOZAPINE [Suspect]
     Active Substance: CLOZAPINE
     Dosage: 250 MILLIGRAM, ONCE A DAY
     Route: 065
  4. INSULIN NOS [Concomitant]
     Active Substance: INSULIN NOS
     Indication: Type 2 diabetes mellitus
     Dosage: UNK
     Route: 065
  5. TORSEMIDE [Concomitant]
     Active Substance: TORSEMIDE
     Indication: Hypertension
     Dosage: UNK
     Route: 065
  6. APIXABAN [Concomitant]
     Active Substance: APIXABAN
     Indication: Atrial fibrillation
     Dosage: UNK
     Route: 065
  7. BISOPROLOL [Concomitant]
     Active Substance: BISOPROLOL
     Indication: Hypertension
     Dosage: UNK
     Route: 065

REACTIONS (5)
  - Autoimmune disorder [Recovered/Resolved]
  - Polyserositis [Recovered/Resolved]
  - Pericardial effusion [Recovered/Resolved]
  - Cardiac tamponade [Recovered/Resolved]
  - Pleural effusion [Recovered/Resolved]
